FAERS Safety Report 8250381-6 (Version None)
Quarter: 2012Q2

REPORT INFORMATION
  Report Type: 
  Country: None (occurrence: None)
  Receive Date: 20120402
  Receipt Date: 20120328
  Transmission Date: 20120825
  Serious: Yes (Hospitalization, Other)
  Sender: FDA-Public Use
  Company Number: US-ROCHE-1054829

PATIENT
  Sex: Female

DRUGS (3)
  1. HERCEPTIN [Suspect]
     Indication: BREAST CANCER METASTATIC
     Route: 042
  2. ABRAXANE [Concomitant]
  3. CARBOPLATIN [Concomitant]

REACTIONS (2)
  - GALLBLADDER OPERATION [None]
  - CARDIAC FAILURE [None]
